FAERS Safety Report 21398954 (Version 2)
Quarter: 2022Q4

REPORT INFORMATION
  Report Type: Spontaneous
  Country: US (occurrence: US)
  Receive Date: 20221001
  Receipt Date: 20221012
  Transmission Date: 20230112
  Serious: No
  Sender: FDA-Public Use
  Company Number: US-drreddys-SPO/USA/22/0155161

PATIENT
  Age: 16 Year
  Sex: Female

DRUGS (1)
  1. ZENATANE [Suspect]
     Active Substance: ISOTRETINOIN
     Indication: Acne
     Dosage: RMA ISSUE DATE: 04 MAY 2022 12:32:22 PM, 06 JUNE 2022 06:04:11 PM, 05 JULY 2022 05:33:28 PM, 02 AUGU

REACTIONS (2)
  - Drug intolerance [Unknown]
  - Nausea [Unknown]
